FAERS Safety Report 8479363-6 (Version None)
Quarter: 2012Q2

REPORT INFORMATION
  Report Type: 
  Country: None (occurrence: None)
  Receive Date: 20120402
  Receipt Date: 20110415
  Transmission Date: 20120825
  Serious: Yes (Other)
  Sender: FDA-Public Use
  Company Number: A-NJ2011-47626

PATIENT
  Age: 79 Year
  Sex: Female

DRUGS (4)
  1. TRACLEER [Suspect]
     Indication: PULMONARY ARTERIAL HYPERTENSION
     Dosage: 125 MG, BID, ORAL 62.5 MG, BID, ORAL
     Route: 048
     Dates: start: 20050709, end: 20110401
  2. TRACLEER [Suspect]
     Indication: PULMONARY ARTERIAL HYPERTENSION
     Dosage: 125 MG, BID, ORAL 62.5 MG, BID, ORAL
     Route: 048
     Dates: start: 20050609, end: 20050708
  3. COUMADIN [Concomitant]
  4. REVATIO [Concomitant]

REACTIONS (2)
  - ASPARTATE AMINOTRANSFERASE INCREASED [None]
  - ALANINE AMINOTRANSFERASE INCREASED [None]
